FAERS Safety Report 25470597 (Version 2)
Quarter: 2025Q3

REPORT INFORMATION
  Report Type: Spontaneous
  Country: US (occurrence: US)
  Receive Date: 20250624
  Receipt Date: 20250801
  Transmission Date: 20251020
  Serious: Yes (Other)
  Sender: LUPIN
  Company Number: US-LUPIN HEALTHCARE (UK) LIMITED-2025-05026

PATIENT

DRUGS (1)
  1. TIOTROPIUM BROMIDE [Suspect]
     Active Substance: TIOTROPIUM BROMIDE
     Indication: Product used for unknown indication
     Route: 065

REACTIONS (4)
  - Anaphylactic reaction [Unknown]
  - Wheezing [Unknown]
  - Chest discomfort [Unknown]
  - Respiration abnormal [Unknown]
